FAERS Safety Report 6465577-3 (Version None)
Quarter: 2009Q4

REPORT INFORMATION
  Report Type: 
  Country: None (occurrence: None)
  Receive Date: 20091201
  Receipt Date: 20090817
  Transmission Date: 20100525
  Serious: No
  Sender: FDA-Public Use
  Company Number: US-AMGEN-KDL316858

PATIENT
  Sex: Female
  Weight: 85.8 kg

DRUGS (2)
  1. ENBREL [Suspect]
     Indication: RHEUMATOID ARTHRITIS
     Route: 058
     Dates: start: 20070802, end: 20081101
  2. ACYCLOVIR [Concomitant]

REACTIONS (2)
  - HERPES ZOSTER [None]
  - PRURITUS [None]
